FAERS Safety Report 16149320 (Version 1)
Quarter: 2019Q2

REPORT INFORMATION
  Report Type: Spontaneous
  Country: US (occurrence: US)
  Receive Date: 20190402
  Receipt Date: 20190402
  Transmission Date: 20190711
  Serious: No
  Sender: FDA-Public Use
  Company Number: US-TEVA-2019-US-1026661

PATIENT
  Sex: Male

DRUGS (1)
  1. LIDOCAINE PATCHES [Suspect]
     Active Substance: LIDOCAINE
     Route: 065
     Dates: start: 20190305

REACTIONS (3)
  - Application site pruritus [Not Recovered/Not Resolved]
  - Application site rash [Not Recovered/Not Resolved]
  - Application site burn [Not Recovered/Not Resolved]

NARRATIVE: CASE EVENT DATE: 20190305
